FAERS Safety Report 6479912-3 (Version None)
Quarter: 2009Q4

REPORT INFORMATION
  Report Type: 
  Country: None (occurrence: None)
  Receive Date: 20091208
  Receipt Date: 20091111
  Transmission Date: 20100525
  Serious: Yes (Death, Hospitalization)
  Sender: FDA-Public Use
  Company Number: DE-SANOFI-AVENTIS-2009SA001206

PATIENT
  Age: 39 Year
  Sex: Male

DRUGS (3)
  1. OXALIPLATIN [Suspect]
     Indication: GASTRIC CANCER
     Dosage: DAY 1, 8 AND EACH 21 DAYS
     Route: 040
     Dates: start: 20081122, end: 20081122
  2. DOCETAXEL [Suspect]
     Indication: BREAST CANCER
     Dosage: DAY 1, 8 AND EACH 21 DAYS
     Route: 040
     Dates: start: 20081122, end: 20081122
  3. CAPECITABINE [Suspect]
     Indication: BREAST CANCER
     Dosage: DAY 1 TO DAY 14
     Route: 048
     Dates: start: 20081122, end: 20081122

REACTIONS (9)
  - BLOOD CREATININE INCREASED [None]
  - BLOOD THROMBOPLASTIN INCREASED [None]
  - CHOLECYSTITIS [None]
  - FATIGUE [None]
  - HEPATIC ENZYME INCREASED [None]
  - HEPATIC FAILURE [None]
  - HYPONATRAEMIA [None]
  - RENAL FAILURE [None]
  - URINE OUTPUT DECREASED [None]
